FAERS Safety Report 19655419 (Version 1)
Quarter: 2021Q3

REPORT INFORMATION
  Report Type: Spontaneous
  Country: US (occurrence: US)
  Receive Date: 20210803
  Receipt Date: 20210803
  Transmission Date: 20211014
  Serious: Yes (Death)
  Sender: FDA-Public Use
  Company Number: None

PATIENT
  Sex: Male

DRUGS (2)
  1. N/A [Concomitant]
     Active Substance: UNSPECIFIED INGREDIENT
  2. ESBRIET [Suspect]
     Active Substance: PIRFENIDONE
     Indication: PROSTATE CANCER
     Route: 048
     Dates: start: 20210415

REACTIONS (1)
  - Death [None]
